FAERS Safety Report 18778191 (Version 2)
Quarter: 2021Q1

REPORT INFORMATION
  Report Type: Spontaneous
  Country: IR (occurrence: IR)
  Receive Date: 20210123
  Receipt Date: 20210202
  Transmission Date: 20210419
  Serious: Yes (Life-Threatening, Hospitalization, Other)
  Sender: FDA-Public Use
  Company Number: IR-ACCORD-214787

PATIENT
  Age: 30 Year
  Sex: Female

DRUGS (1)
  1. METHOTREXATE. [Suspect]
     Active Substance: METHOTREXATE
     Indication: ECTOPIC PREGNANCY
     Dosage: SINGLE 80 MG (50 MG/M2) DOSE
     Route: 030

REACTIONS (19)
  - Pseudomonas infection [Recovered/Resolved]
  - Myelosuppression [Recovered/Resolved]
  - Drug level increased [Recovered/Resolved]
  - Multi-organ disorder [Recovered/Resolved]
  - Blood creatinine increased [Recovered/Resolved]
  - Condition aggravated [Recovered/Resolved]
  - Septic shock [Recovered/Resolved]
  - Anaemia [Recovered/Resolved]
  - Rash pustular [Recovered/Resolved]
  - Alopecia [Recovered/Resolved]
  - Pancytopenia [Recovered/Resolved]
  - Loss of consciousness [Recovered/Resolved]
  - Neurotoxicity [Recovered/Resolved]
  - Skin hyperpigmentation [Recovered/Resolved]
  - Hypernatraemia [Recovered/Resolved]
  - Mouth ulceration [Recovered/Resolved]
  - Maternal exposure during pregnancy [Recovered/Resolved]
  - Drug hypersensitivity [Recovered/Resolved]
  - Dehydration [Recovered/Resolved]
